FAERS Safety Report 24206835 (Version 1)
Quarter: 2024Q3

REPORT INFORMATION
  Report Type: Spontaneous
  Country: ID (occurrence: ID)
  Receive Date: 20240813
  Receipt Date: 20240813
  Transmission Date: 20241016
  Serious: Yes (Hospitalization, Other)
  Sender: ANI
  Company Number: ID-ANIPHARMA-2024-ID-000012

PATIENT
  Age: 31 Year
  Sex: Male

DRUGS (1)
  1. CEFADROXIL [Suspect]
     Active Substance: CEFADROXIL
     Indication: Influenza

REACTIONS (1)
  - Acute generalised exanthematous pustulosis [Recovered/Resolved]
